FAERS Safety Report 18807765 (Version 14)
Quarter: 2022Q3

REPORT INFORMATION
  Report Type: Spontaneous
  Country: CA (occurrence: CA)
  Receive Date: 20210129
  Receipt Date: 20220704
  Transmission Date: 20221027
  Serious: Yes (Other)
  Sender: FDA-Public Use
  Company Number: CA-CELLTRION INC.-2018CA018637

PATIENT

DRUGS (58)
  1. INFLECTRA [Suspect]
     Active Substance: INFLIXIMAB-DYYB
     Indication: Crohn^s disease
     Dosage: 5 MG/KG, AT 0, 2 ,6 WEEKS, THEN EVERY 8 WEEKS (INFLIXIMAB 100MG MILLIGRAM(S))
     Route: 042
     Dates: start: 20180103, end: 20180801
  2. INFLECTRA [Suspect]
     Active Substance: INFLIXIMAB-DYYB
     Dosage: 315 MG, AT 0, 2, 6 WEEKS, THEN EVERY 8 WEEKS
     Route: 042
     Dates: start: 20180214
  3. INFLECTRA [Suspect]
     Active Substance: INFLIXIMAB-DYYB
     Dosage: 315 MG, AT 0, 2, 6 WEEKS, THEN EVERY 8 WEEKS
     Route: 042
     Dates: start: 20180411
  4. INFLECTRA [Suspect]
     Active Substance: INFLIXIMAB-DYYB
     Dosage: 315 MG, AT 0, 2, 6 WEEKS, THEN EVERY 8 WEEKS
     Route: 042
     Dates: start: 20180606
  5. INFLECTRA [Suspect]
     Active Substance: INFLIXIMAB-DYYB
     Dosage: 315 MG (4.84 MG/KG), AT 0, 2, 6 WEEKS, THEN EVERY 8 WEEKS
     Route: 042
     Dates: start: 20180801
  6. INFLECTRA [Suspect]
     Active Substance: INFLIXIMAB-DYYB
     Dosage: 315 MG (4.84 MG/KG), AT 0, 2, 6 WEEKS, THEN EVERY 8 WEEKS
     Route: 042
     Dates: start: 20180801
  7. INFLECTRA [Suspect]
     Active Substance: INFLIXIMAB-DYYB
     Dosage: 650 MG, EVERY 8 WEEKS (INFLIXIMAB 100MG MILLIGRAM(S))
     Route: 042
     Dates: start: 20181017, end: 20190130
  8. INFLECTRA [Suspect]
     Active Substance: INFLIXIMAB-DYYB
     Dosage: 650 MG, EVERY 8 WEEKS
     Route: 042
     Dates: start: 20181017, end: 20190130
  9. INFLECTRA [Suspect]
     Active Substance: INFLIXIMAB-DYYB
     Dosage: 650 MG, EVERY 8 WEEKS
     Route: 042
     Dates: start: 20181205
  10. INFLECTRA [Suspect]
     Active Substance: INFLIXIMAB-DYYB
     Dosage: 650 MG, EVERY 8 WEEKS
     Route: 042
     Dates: start: 20190130
  11. INFLECTRA [Suspect]
     Active Substance: INFLIXIMAB-DYYB
     Dosage: 650 MG, EVERY 4 WEEKS
     Route: 042
     Dates: start: 20190227, end: 20190619
  12. INFLECTRA [Suspect]
     Active Substance: INFLIXIMAB-DYYB
     Dosage: 650 MG, EVERY 4 WEEKS
     Route: 042
     Dates: start: 20190327
  13. INFLECTRA [Suspect]
     Active Substance: INFLIXIMAB-DYYB
     Dosage: 650 MG, EVERY 4 WEEKS
     Route: 042
     Dates: start: 20190424
  14. INFLECTRA [Suspect]
     Active Substance: INFLIXIMAB-DYYB
     Dosage: 650 MG, EVERY 4 WEEKS
     Route: 042
     Dates: start: 20190619
  15. INFLECTRA [Suspect]
     Active Substance: INFLIXIMAB-DYYB
     Dosage: 650 MG, EVERY 6 WEEKS (INFLIXIMAB 100MG MILLIGRAM(S))
     Route: 042
     Dates: start: 20190731
  16. INFLECTRA [Suspect]
     Active Substance: INFLIXIMAB-DYYB
     Dosage: 650 MG, EVERY 6 WEEKS
     Route: 042
     Dates: start: 20190731, end: 20201111
  17. INFLECTRA [Suspect]
     Active Substance: INFLIXIMAB-DYYB
     Dosage: 650 MG, EVERY 6 WEEKS
     Route: 042
     Dates: start: 20190911
  18. INFLECTRA [Suspect]
     Active Substance: INFLIXIMAB-DYYB
     Dosage: 650 MG, EVERY 6 WEEKS
     Route: 042
     Dates: start: 20191023
  19. INFLECTRA [Suspect]
     Active Substance: INFLIXIMAB-DYYB
     Dosage: 650 MG, EVERY 6 WEEKS
     Route: 042
     Dates: start: 20191204
  20. INFLECTRA [Suspect]
     Active Substance: INFLIXIMAB-DYYB
     Dosage: 650 MG, EVERY 6 WEEKS
     Route: 042
     Dates: start: 20200115
  21. INFLECTRA [Suspect]
     Active Substance: INFLIXIMAB-DYYB
     Dosage: 650 MG, EVERY 6 WEEKS
     Route: 042
     Dates: start: 20200226
  22. INFLECTRA [Suspect]
     Active Substance: INFLIXIMAB-DYYB
     Dosage: 650 MG, EVERY 6 WEEKS
     Route: 042
     Dates: start: 20200407
  23. INFLECTRA [Suspect]
     Active Substance: INFLIXIMAB-DYYB
     Dosage: 650 MG, EVERY 6 WEEKS
     Route: 042
     Dates: start: 20200520
  24. INFLECTRA [Suspect]
     Active Substance: INFLIXIMAB-DYYB
     Dosage: 650 MG, EVERY 6 WEEKS
     Route: 042
     Dates: start: 20200708
  25. INFLECTRA [Suspect]
     Active Substance: INFLIXIMAB-DYYB
     Dosage: 650 MG, EVERY 6 WEEKS
     Route: 042
     Dates: start: 20200819
  26. INFLECTRA [Suspect]
     Active Substance: INFLIXIMAB-DYYB
     Dosage: 650 MG, EVERY 6 WEEKS
     Route: 042
     Dates: start: 20200930
  27. INFLECTRA [Suspect]
     Active Substance: INFLIXIMAB-DYYB
     Dosage: 650 MG, EVERY 6 WEEKS
     Route: 042
     Dates: start: 20201111
  28. INFLECTRA [Suspect]
     Active Substance: INFLIXIMAB-DYYB
     Dosage: 10 MG/KG, EVERY 4 WEEKS (INFLIXIMAB 100MG MILLIGRAM(S))
     Route: 042
     Dates: start: 20201223
  29. INFLECTRA [Suspect]
     Active Substance: INFLIXIMAB-DYYB
     Dosage: 10 MG/KG, EVERY 4 WEEKS
     Route: 042
     Dates: start: 20201223
  30. INFLECTRA [Suspect]
     Active Substance: INFLIXIMAB-DYYB
     Dosage: 10 MG/KG, EVERY 4 WEEKS
     Route: 042
     Dates: start: 20210120
  31. INFLECTRA [Suspect]
     Active Substance: INFLIXIMAB-DYYB
     Dosage: 10 MG/KG, EVERY 4 WEEKS (INFLIXIMAB 100MG MILLIGRAM(S))
     Route: 042
     Dates: start: 20210217
  32. INFLECTRA [Suspect]
     Active Substance: INFLIXIMAB-DYYB
     Dosage: 10 MG/KG, EVERY 4 WEEKS (INFLIXIMAB 100MG MILLIGRAM(S))
     Route: 042
     Dates: start: 20210317
  33. INFLECTRA [Suspect]
     Active Substance: INFLIXIMAB-DYYB
     Dosage: 10 MG/KG, EVERY 4 WEEKS (INFLIXIMAB 100MG MILLIGRAM(S))
     Route: 042
     Dates: start: 20210428
  34. INFLECTRA [Suspect]
     Active Substance: INFLIXIMAB-DYYB
     Dosage: 10 MG/KG, EVERY 4 WEEKS (INFLIXIMAB 100MG MILLIGRAM(S))
     Route: 042
     Dates: start: 20210526
  35. INFLECTRA [Suspect]
     Active Substance: INFLIXIMAB-DYYB
     Dosage: 10 MG/KG, EVERY 4 WEEKS (INFLIXIMAB 100MG MILLIGRAM(S))
     Route: 042
     Dates: start: 20210623
  36. INFLECTRA [Suspect]
     Active Substance: INFLIXIMAB-DYYB
     Dosage: 10 MG/KG, EVERY 4 WEEKS (INFLIXIMAB 100MG MILLIGRAM(S))
     Route: 042
     Dates: start: 20210721
  37. INFLECTRA [Suspect]
     Active Substance: INFLIXIMAB-DYYB
     Dosage: 10 MG/KG, EVERY 4 WEEKS (INFLIXIMAB 100MG MILLIGRAM(S))
     Route: 042
     Dates: start: 20210818
  38. INFLECTRA [Suspect]
     Active Substance: INFLIXIMAB-DYYB
     Dosage: 10 MG/KG, EVERY 4 WEEKS (INFLIXIMAB 100MG MILLIGRAM(S))
     Route: 042
     Dates: start: 20211013
  39. INFLECTRA [Suspect]
     Active Substance: INFLIXIMAB-DYYB
     Dosage: 10 MG/KG, EVERY 4 WEEKS (INFLIXIMAB 100MG MILLIGRAM(S))
     Route: 042
     Dates: start: 20211110
  40. INFLECTRA [Suspect]
     Active Substance: INFLIXIMAB-DYYB
     Dosage: 10 MG/KG, EVERY 4 WEEKS (INFLIXIMAB 100MG MILLIGRAM(S))
     Route: 042
     Dates: start: 20211208
  41. INFLECTRA [Suspect]
     Active Substance: INFLIXIMAB-DYYB
     Dosage: 10 MG/KG, EVERY 4 WEEKS (INFLIXIMAB 100MG MILLIGRAM(S))
     Route: 042
     Dates: start: 20220105
  42. INFLECTRA [Suspect]
     Active Substance: INFLIXIMAB-DYYB
     Dosage: 10 MG/KG, EVERY 4 WEEKS (INFLIXIMAB 100MG MILLIGRAM(S))
     Route: 042
     Dates: start: 20220302
  43. INFLECTRA [Suspect]
     Active Substance: INFLIXIMAB-DYYB
     Dosage: 10 MG/KG, EVERY 4 WEEKS (INFLIXIMAB 100MG MILLIGRAM(S))
     Route: 042
     Dates: start: 20220330
  44. INFLECTRA [Suspect]
     Active Substance: INFLIXIMAB-DYYB
     Dosage: 10 MG/KG EVERY 4 WEEKS
     Route: 042
     Dates: start: 20220427
  45. INFLECTRA [Suspect]
     Active Substance: INFLIXIMAB-DYYB
     Dosage: 10 MG/KG EVERY 4 WEEKS
     Route: 042
     Dates: start: 20220622
  46. AZATHIOPRINE [Concomitant]
     Active Substance: AZATHIOPRINE
     Dosage: 125 MG, 1X/DAY
     Route: 048
     Dates: start: 2016
  47. BENADRYL [Concomitant]
     Active Substance: DIPHENHYDRAMINE HYDROCHLORIDE
     Indication: Premedication
     Dosage: 25 MG
     Route: 048
  48. BENADRYL [Concomitant]
     Active Substance: DIPHENHYDRAMINE HYDROCHLORIDE
     Dosage: UNK (50)
  49. DIPHENHYDRAMINE [Concomitant]
     Active Substance: DIPHENHYDRAMINE
     Indication: Premedication
     Dosage: 25 MG, UNK
     Route: 048
     Dates: start: 20210623, end: 20210623
  50. DIPHENHYDRAMINE [Concomitant]
     Active Substance: DIPHENHYDRAMINE
     Dosage: 25 MG, UNK
     Route: 042
     Dates: start: 20211110, end: 20211110
  51. ENTOCORT [Concomitant]
     Active Substance: BUDESONIDE
     Dosage: 1 DF, DOSAGE INFORMATION NOT AVAILABLE
     Route: 065
  52. HYDROCORTISONE [Concomitant]
     Active Substance: HYDROCORTISONE
     Indication: Premedication
     Dosage: 100 MG
  53. HYDROCORTISONE [Concomitant]
     Active Substance: HYDROCORTISONE
     Dosage: 100 UNK
     Route: 042
     Dates: start: 20210623, end: 20210623
  54. HYDROCORTISONE [Concomitant]
     Active Substance: HYDROCORTISONE
     Dosage: 100 MG
     Route: 042
     Dates: start: 20211110, end: 20211110
  55. PENTASA [Concomitant]
     Active Substance: MESALAMINE
     Dosage: 1 DF, DOSAGE INFORMATION NOT AVAILABLE
     Route: 065
  56. SOLU-CORTEF [Concomitant]
     Active Substance: HYDROCORTISONE SODIUM SUCCINATE
     Dosage: 100 MG
     Route: 042
     Dates: start: 20211110, end: 20211110
  57. TIAZAC [Concomitant]
     Active Substance: DILTIAZEM HYDROCHLORIDE
     Dosage: 360 MG, 1X/DAY
     Route: 048
     Dates: start: 2009
  58. WARFARIN [Concomitant]
     Active Substance: WARFARIN
     Dosage: 1 MG, 1X/DAY
     Route: 048
     Dates: start: 2009

REACTIONS (23)
  - Condition aggravated [Recovered/Resolved]
  - Drug level decreased [Unknown]
  - Off label use [Unknown]
  - Incorrect dose administered [Unknown]
  - Inappropriate schedule of product administration [Unknown]
  - Product dose omission issue [Unknown]
  - Abscess [Unknown]
  - Blood pressure fluctuation [Unknown]
  - Body temperature fluctuation [Unknown]
  - Contusion [Unknown]
  - Cystitis [Unknown]
  - Fall [Unknown]
  - Weight increased [Not Recovered/Not Resolved]
  - Heart rate decreased [Unknown]
  - Psoriasis [Unknown]
  - Ear infection [Unknown]
  - Bladder prolapse [Not Recovered/Not Resolved]
  - Bladder pain [Not Recovered/Not Resolved]
  - Dysuria [Unknown]
  - Mobility decreased [Unknown]
  - Vomiting [Recovered/Resolved]
  - Asthenia [Not Recovered/Not Resolved]
  - Urinary tract infection [Recovered/Resolved]

NARRATIVE: CASE EVENT DATE: 20180214
